FAERS Safety Report 9598614 (Version 1)
Quarter: 2013Q4

REPORT INFORMATION
  Report Type: Spontaneous
  Country: US (occurrence: US)
  Receive Date: 20131004
  Receipt Date: 20131004
  Transmission Date: 20140711
  Serious: No
  Sender: FDA-Public Use
  Company Number: US-AMGEN-USASP2013024954

PATIENT
  Age: 37 Year
  Sex: Male

DRUGS (5)
  1. ENBREL [Suspect]
     Indication: PSORIASIS
     Dosage: 50 MG, ONCE A WEEK
     Route: 058
  2. VITAMIN D3 [Concomitant]
     Dosage: 400 UNIT, ONE A DAY MENS
  3. SINGULAIR [Concomitant]
     Dosage: 4 MG, UNK
  4. ZYRTEC [Concomitant]
     Dosage: 5 MG, UNK
  5. MONOCYCLINE [Concomitant]
     Dosage: 100 MG, UNK

REACTIONS (2)
  - Eye disorder [Unknown]
  - Eye haemorrhage [Unknown]
